FAERS Safety Report 13043314 (Version 1)
Quarter: 2016Q4

REPORT INFORMATION
  Report Type: Spontaneous
  Country: US (occurrence: US)
  Receive Date: 20161219
  Receipt Date: 20161219
  Transmission Date: 20170207
  Serious: No
  Sender: FDA-Public Use
  Company Number: US-TAIHO ONCOLOGY INC-EU-2016-03196

PATIENT
  Age: 64 Year
  Sex: Male

DRUGS (5)
  1. MORPHINE SULFATE. [Concomitant]
     Active Substance: MORPHINE SULFATE
  2. LONSURF [Suspect]
     Active Substance: TIPIRACIL HYDROCHLORIDE\TRIFLURIDINE
     Indication: RECTAL CANCER
     Route: 048
     Dates: start: 20161027
  3. DEXAMETHASONE. [Concomitant]
     Active Substance: DEXAMETHASONE
  4. HYDROCODONE [Concomitant]
     Active Substance: HYDROCODONE
  5. MARINOL [Concomitant]
     Active Substance: DRONABINOL

REACTIONS (4)
  - Hyperhidrosis [Not Recovered/Not Resolved]
  - Abdominal discomfort [Not Recovered/Not Resolved]
  - Swelling [Not Recovered/Not Resolved]
  - Fatigue [Not Recovered/Not Resolved]

NARRATIVE: CASE EVENT DATE: 201611
